FAERS Safety Report 19594509 (Version 3)
Quarter: 2021Q3

REPORT INFORMATION
  Report Type: Spontaneous
  Country: JP (occurrence: JP)
  Receive Date: 20210722
  Receipt Date: 20210813
  Transmission Date: 20211014
  Serious: Yes (Other)
  Sender: FDA-Public Use
  Company Number: JP-JNJFOC-20210742933

PATIENT

DRUGS (4)
  1. TRAMCET [Suspect]
     Active Substance: ACETAMINOPHEN\TRAMADOL
     Indication: PAIN
     Route: 048
  2. DUROTEP [Suspect]
     Active Substance: FENTANYL
     Indication: PAIN
     Dosage: 12.5MCG/HR
     Route: 062
     Dates: start: 20210716
  3. TRAMCET [Suspect]
     Active Substance: ACETAMINOPHEN\TRAMADOL
     Indication: PAIN
     Route: 048
  4. DUROTEP [Suspect]
     Active Substance: FENTANYL
     Indication: CANCER PAIN

REACTIONS (6)
  - Bladder cancer [Unknown]
  - Skin erosion [Unknown]
  - Somnolence [Unknown]
  - Dysphagia [Unknown]
  - Treatment noncompliance [Unknown]
  - Anal incontinence [Unknown]
